FAERS Safety Report 7387280-8 (Version None)
Quarter: 2011Q1

REPORT INFORMATION
  Report Type: 
  Country: None (occurrence: None)
  Receive Date: 20110331
  Receipt Date: 20110324
  Transmission Date: 20110831
  Serious: Yes (Hospitalization)
  Sender: FDA-Public Use
  Company Number: IE-MEDIMMUNE-MEDI-0012991

PATIENT
  Sex: Female
  Weight: 5.84 kg

DRUGS (6)
  1. FERROUS SULFATE TAB [Concomitant]
  2. SPIRONOLACTONE [Concomitant]
  3. CEFACLOR [Concomitant]
  4. FUROSEMIDE [Concomitant]
  5. CAPTOPRIL [Concomitant]
  6. SYNAGIS [Suspect]
     Indication: HEART DISEASE CONGENITAL
     Route: 030

REACTIONS (1)
  - CARDIAC OPERATION [None]
